FAERS Safety Report 15200271 (Version 2)
Quarter: 2018Q3

REPORT INFORMATION
  Report Type: Report from Study
  Country: FR (occurrence: FR)
  Receive Date: 20180726
  Receipt Date: 20180907
  Transmission Date: 20181010
  Serious: Yes (Other)
  Sender: FDA-Public Use
  Company Number: FR-CONCORDIA PHARMACEUTICALS INC.-E2B_00014576

PATIENT
  Age: 16 Year
  Sex: Female

DRUGS (4)
  1. TRETINOIN. [Suspect]
     Active Substance: TRETINOIN
     Indication: CASTLEMAN^S DISEASE
  2. PREDNISOLONE. [Suspect]
     Active Substance: PREDNISOLONE
     Indication: CASTLEMAN^S DISEASE
     Dosage: FURTHER, REDUCED TO 0.25 MG/KG/DAY?1 MG/KG/DAY; START AT DAY 26
     Route: 048
  3. TRETINOIN. [Suspect]
     Active Substance: TRETINOIN
     Indication: THROMBOTIC MICROANGIOPATHY
     Route: 065
  4. PREDNISOLONE. [Suspect]
     Active Substance: PREDNISOLONE
     Indication: THROMBOTIC MICROANGIOPATHY
     Dosage: 0.25 MG/KG/DAY; AFTER 6 MONTHS OF 1 MG/KG DOSAGE; STOPPED AT 30 MONTHS
     Route: 048

REACTIONS (5)
  - Intracranial pressure increased [Unknown]
  - Hyperkalaemia [Unknown]
  - Device related infection [Unknown]
  - Pulmonary embolism [Unknown]
  - Product use in unapproved indication [Unknown]
